FAERS Safety Report 16207822 (Version 2)
Quarter: 2021Q1

REPORT INFORMATION
  Report Type: Report from Study
  Country: US (occurrence: US)
  Receive Date: 20190417
  Receipt Date: 20210122
  Transmission Date: 20210419
  Serious: Yes (Hospitalization, Other)
  Sender: FDA-Public Use
  Company Number: US-BAUSCH-BL-2019-005851

PATIENT
  Age: 69 Year
  Sex: Male
  Weight: 86.26 kg

DRUGS (1)
  1. XIFAXAN [Suspect]
     Active Substance: RIFAXIMIN
     Indication: HEPATIC ENCEPHALOPATHY
     Route: 048
     Dates: start: 201801

REACTIONS (2)
  - Hospitalisation [Not Recovered/Not Resolved]
  - Hepatic mass [Unknown]

NARRATIVE: CASE EVENT DATE: 201902
